FAERS Safety Report 15655901 (Version 2)
Quarter: 2018Q4

REPORT INFORMATION
  Report Type: Spontaneous
  Country: US (occurrence: US)
  Receive Date: 20181126
  Receipt Date: 20181206
  Transmission Date: 20190205
  Serious: Yes (Other)
  Sender: FDA-Public Use
  Company Number: US-GLAXOSMITHKLINE-US2018GSK210745

PATIENT
  Sex: Female

DRUGS (3)
  1. PREDNISONE. [Concomitant]
     Active Substance: PREDNISONE
  2. BENLYSTA [Suspect]
     Active Substance: BELIMUMAB
     Indication: SYSTEMIC LUPUS ERYTHEMATOSUS
     Dosage: UNK UNK, CYC
     Route: 042
     Dates: start: 201801
  3. IMURAN [Concomitant]
     Active Substance: AZATHIOPRINE

REACTIONS (7)
  - Drug ineffective [Unknown]
  - Drug effect decreased [Unknown]
  - Therapeutic response decreased [Unknown]
  - Systemic lupus erythematosus [Unknown]
  - Pain in extremity [Unknown]
  - Therapeutic response unexpected [Unknown]
  - Myalgia [Unknown]
